FAERS Safety Report 6426957-5 (Version None)
Quarter: 2009Q4

REPORT INFORMATION
  Report Type: 
  Country: None (occurrence: None)
  Receive Date: 20091103
  Receipt Date: 20091103
  Transmission Date: 20100525
  Serious: Yes (Other)
  Sender: FDA-Public Use
  Company Number: None

PATIENT
  Age: 58 Year
  Sex: Female

DRUGS (4)
  1. GEODON [Suspect]
     Indication: MOOD ALTERED
     Dosage: 20MG TWICE A DAY ORALLY
     Route: 048
     Dates: start: 20090512, end: 20090807
  2. HYDROXYZINE [Concomitant]
  3. SERTRALINE HCL [Concomitant]
  4. AMITRIPTYLINE [Concomitant]

REACTIONS (1)
  - TARDIVE DYSKINESIA [None]
